FAERS Safety Report 5115196-6 (Version None)
Quarter: 2006Q3

REPORT INFORMATION
  Report Type: 
  Country: None (occurrence: None)
  Receive Date: 20060926
  Receipt Date: 20060925
  Transmission Date: 20061208
  Serious: Yes (Hospitalization)
  Sender: FDA-Public Use
  Company Number: US-BOEHRINGER INGELHEIM PHARMACEUTICALS, INC.-2006-BP-11231BP

PATIENT
  Sex: Male

DRUGS (1)
  1. CATAPRES [Suspect]
     Indication: HYPERTENSION
     Route: 048
     Dates: start: 20030101, end: 20050101

REACTIONS (2)
  - HYPERTENSION [None]
  - THROMBOSIS [None]
